FAERS Safety Report 4711993-7 (Version None)
Quarter: 2005Q3

REPORT INFORMATION
  Report Type: 
  Country: None (occurrence: None)
  Receive Date: 20050711
  Receipt Date: 20050711
  Transmission Date: 20060218
  Serious: Yes (Hospitalization)
  Sender: FDA-Public Use
  Company Number: None

PATIENT
  Sex: Male
  Weight: 110.2241 kg

DRUGS (9)
  1. LISINOPRIL [Suspect]
     Indication: HYPERTENSION
     Dosage: 10 MG DAILY
  2. FESO4 [Concomitant]
  3. SYNTHROID [Concomitant]
  4. INSULIN [Concomitant]
  5. OLANZAPINE [Concomitant]
  6. SINGULAIR [Concomitant]
  7. PLAVIX [Concomitant]
  8. LASIX [Concomitant]
  9. SERTRALINE HCL [Concomitant]

REACTIONS (1)
  - BLOOD POTASSIUM INCREASED [None]
